FAERS Safety Report 23771282 (Version 1)
Quarter: 2024Q2

REPORT INFORMATION
  Report Type: Spontaneous
  Country: CN (occurrence: CN)
  Receive Date: 20240423
  Receipt Date: 20240423
  Transmission Date: 20240716
  Serious: Yes (Hospitalization, Other)
  Sender: FDA-Public Use
  Company Number: CN-SA-2024SA115765

PATIENT
  Age: 83 Year
  Sex: Male
  Weight: 70 kg

DRUGS (4)
  1. INSULIN GLARGINE [Suspect]
     Active Substance: INSULIN GLARGINE
     Indication: Diabetes mellitus inadequate control
     Dosage: 10 U, HS
     Route: 058
  2. INSULIN ASPART [Suspect]
     Active Substance: INSULIN ASPART
     Indication: Diabetes mellitus inadequate control
     Dosage: UNK UNK, TID; 8 UNIT-10 UNIT-10 UNIT
  3. NIFEDIPINE SUSTAINED RELEASE TABLETS (I) [Concomitant]
     Indication: Hypertension
  4. CANDESARTAN [Concomitant]
     Active Substance: CANDESARTAN
     Indication: Hypertension

REACTIONS (11)
  - Insulin autoimmune syndrome [Recovered/Resolved]
  - Hypoglycaemia [Recovered/Resolved]
  - Psychiatric symptom [Recovered/Resolved]
  - Sleep talking [Recovered/Resolved]
  - Disorganised speech [Recovered/Resolved]
  - Dysarthria [Recovered/Resolved]
  - Drooling [Recovered/Resolved]
  - Delirium [Recovered/Resolved]
  - Fatigue [Recovered/Resolved]
  - Palpitations [Recovered/Resolved]
  - Discomfort [Recovered/Resolved]
